FAERS Safety Report 7250084-0 (Version None)
Quarter: 2011Q1

REPORT INFORMATION
  Report Type: 
  Country: None (occurrence: None)
  Receive Date: 20110128
  Receipt Date: 20100930
  Transmission Date: 20110831
  Serious: Yes (Hospitalization)
  Sender: FDA-Public Use
  Company Number: US-BAYER-201021082NA

PATIENT
  Sex: Female
  Weight: 60 kg

DRUGS (9)
  1. SPIRONOLACTONE [Concomitant]
     Indication: ACNE
  2. VELIVET [Concomitant]
     Indication: ACNE
     Dates: start: 20060901
  3. BACTRIM [Concomitant]
     Indication: ACNE
  4. ASPIRIN [Concomitant]
     Dosage: 81 MG (DAILY DOSE), ,
  5. MOTRIN [Concomitant]
     Indication: PAIN IN EXTREMITY
     Dates: start: 20061001
  6. ACETAMINOPHEN [Concomitant]
     Indication: NON-CARDIAC CHEST PAIN
     Dates: start: 20061001
  7. YASMIN [Suspect]
     Indication: ACNE
     Route: 048
     Dates: start: 20060501, end: 20060915
  8. GABAPENTIN [Concomitant]
     Dosage: 300 MG (DAILY DOSE), TID,
  9. PRILOSEC [Concomitant]
     Dosage: 20 MG (DAILY DOSE), PRN,

REACTIONS (2)
  - PULMONARY EMBOLISM [None]
  - DEEP VEIN THROMBOSIS [None]
